FAERS Safety Report 9069684 (Version 2)
Quarter: 2013Q1

REPORT INFORMATION
  Report Type: Report from Study
  Country: US (occurrence: US)
  Receive Date: 20130215
  Receipt Date: 20130222
  Transmission Date: 20140127
  Serious: Yes (Hospitalization)
  Sender: FDA-Public Use
  Company Number: US-CELGENEUS-163-C4047-13022100

PATIENT
  Age: 73 None
  Sex: Male

DRUGS (10)
  1. CC-4047 [Suspect]
     Indication: PLASMA CELL MYELOMA
     Route: 048
     Dates: start: 20130124
  2. CARFILZOMIB [Suspect]
     Indication: PLASMA CELL MYELOMA
     Dosage: 27 MILLIGRAM/SQ. METER
     Route: 041
     Dates: start: 20130124, end: 20130125
  3. CARFILZOMIB [Suspect]
     Dosage: 27 MILLIGRAM/SQ. METER
     Route: 041
     Dates: start: 20130131, end: 20130201
  4. CARFILZOMIB [Suspect]
     Dosage: 27 MILLIGRAM/SQ. METER
     Route: 041
     Dates: start: 20130207, end: 20130208
  5. DEXAMETHASONE [Suspect]
     Indication: PLASMA CELL MYELOMA
     Route: 065
  6. VALACYCLOVIR HCL [Concomitant]
     Indication: ANTIBIOTIC PROPHYLAXIS
     Route: 065
  7. OMEPRAZOLE [Concomitant]
     Indication: NAUSEA
     Route: 065
  8. POTASSIUM [Concomitant]
     Indication: OEDEMA PERIPHERAL
     Route: 065
     Dates: start: 20121114
  9. SENNOKOT [Concomitant]
     Indication: LAXATIVE SUPPORTIVE CARE
     Route: 065
  10. CARDURA [Concomitant]
     Indication: BENIGN PROSTATIC HYPERPLASIA
     Route: 065

REACTIONS (1)
  - Cardiac failure congestive [Recovered/Resolved]
